FAERS Safety Report 17427372 (Version 1)
Quarter: 2020Q1

REPORT INFORMATION
  Report Type: Report from Study
  Country: US (occurrence: US)
  Receive Date: 20200218
  Receipt Date: 20200218
  Transmission Date: 20200409
  Serious: Yes (Hospitalization, Other)
  Sender: FDA-Public Use
  Company Number: US-GILEAD-2020-0451365

PATIENT
  Age: 82 Year
  Sex: Female

DRUGS (2)
  1. TADALAFIL. [Concomitant]
     Active Substance: TADALAFIL
  2. AMBRISENTAN [Suspect]
     Active Substance: AMBRISENTAN
     Indication: PRODUCT USED FOR UNKNOWN INDICATION
     Dosage: 10 MG, QD
     Route: 048
     Dates: start: 20161117

REACTIONS (2)
  - Hypoxia [Unknown]
  - Cardiac failure [Unknown]

NARRATIVE: CASE EVENT DATE: 20200212
